FAERS Safety Report 4662503-4 (Version None)
Quarter: 2005Q2

REPORT INFORMATION
  Report Type: 
  Country: None (occurrence: None)
  Receive Date: 20050513
  Receipt Date: 20050513
  Transmission Date: 20051028
  Serious: Yes (Hospitalization)
  Sender: FDA-Public Use
  Company Number: None

PATIENT
  Age: 78 Year
  Sex: Male

DRUGS (20)
  1. WARFARIN [Suspect]
     Indication: ATRIAL FIBRILLATION
     Dosage: 1MG PO   QHS
     Route: 048
     Dates: start: 20050314, end: 20050321
  2. WARFARIN [Suspect]
     Indication: CEREBROVASCULAR ACCIDENT
     Dosage: 1MG PO   QHS
     Route: 048
     Dates: start: 20050314, end: 20050321
  3. ASPIRIN [Suspect]
     Indication: CEREBROVASCULAR ACCIDENT
     Dosage: 81MG EC   PO  QD
     Route: 048
     Dates: start: 20050315, end: 20050321
  4. ACETAMINOPHEN [Concomitant]
  5. ALBUTEROL [Concomitant]
  6. CALCIUM CARBONATE [Concomitant]
  7. DARBEPOETIN [Concomitant]
  8. DILTIAZEM [Concomitant]
  9. DOCUSATE [Concomitant]
  10. FERROUS SULFATE TAB [Concomitant]
  11. FLUNISOLIDE [Concomitant]
  12. IPRATROPIUM BROMIDE [Concomitant]
  13. ISOSORBIDE DINITRATE [Concomitant]
  14. NITROGLYCERIN [Concomitant]
  15. OMEPRAZOLE [Concomitant]
  16. SIMVASTATIN [Concomitant]
  17. TERAZOSIN [Concomitant]
  18. PREDNISONE [Concomitant]
  19. WARFARIN [Concomitant]
  20. ASPIRIN [Concomitant]

REACTIONS (2)
  - CONFUSIONAL STATE [None]
  - HAEMORRHAGE INTRACRANIAL [None]
